FAERS Safety Report 14648586 (Version 1)
Quarter: 2018Q1

REPORT INFORMATION
  Report Type: Spontaneous
  Country: GB (occurrence: GB)
  Receive Date: 20180316
  Receipt Date: 20180316
  Transmission Date: 20180509
  Serious: Yes (Other)
  Sender: FDA-Public Use
  Company Number: GB-MYLANLABS-2018M1015874

PATIENT
  Age: 84 Year

DRUGS (10)
  1. PARACETAMOL [Concomitant]
     Active Substance: ACETAMINOPHEN
     Indication: PAIN
     Dosage: 4 DF, QD
  2. BISOPROLOL [Suspect]
     Active Substance: BISOPROLOL
     Indication: CHEST PAIN
     Dosage: UNK
     Route: 048
  3. GABAPENTIN. [Concomitant]
     Active Substance: GABAPENTIN
     Indication: MYALGIA
     Dosage: UNK
  4. LIOTHYRONINE [Concomitant]
     Active Substance: LIOTHYRONINE
     Indication: HYPOTHYROIDISM
     Dosage: 10 ?G, UNK
  5. BECLOMETASONE [Concomitant]
     Active Substance: BECLOMETHASONE DIPROPIONATE
     Indication: PRODUCT USED FOR UNKNOWN INDICATION
     Dosage: 400 ?G, QD
  6. AMITRIPTYLINE [Concomitant]
     Active Substance: AMITRIPTYLINE
     Indication: PRODUCT USED FOR UNKNOWN INDICATION
     Dosage: 5 MG, QD, AT NIGHT
  7. VENTOLIN [Concomitant]
     Active Substance: ALBUTEROL SULFATE
     Indication: PRODUCT USED FOR UNKNOWN INDICATION
     Dosage: UNK
  8. THYROXINE [Concomitant]
     Active Substance: LEVOTHYROXINE
     Indication: HYPOTHYROIDISM
     Dosage: 100 ?G, UNK
  9. BOTOX [Concomitant]
     Active Substance: ONABOTULINUMTOXINA
     Indication: INCONTINENCE
     Dosage: 1 DF, Q3MONTHS
  10. MEBEVERINE [Concomitant]
     Active Substance: MEBEVERINE
     Indication: IRRITABLE BOWEL SYNDROME
     Dosage: ONCE OR TWICE DAILY

REACTIONS (5)
  - Abdominal pain [Unknown]
  - Muscle spasms [Recovering/Resolving]
  - Depressed mood [Unknown]
  - Muscular weakness [Unknown]
  - Myalgia [Unknown]
